FAERS Safety Report 5588046-1 (Version None)
Quarter: 2008Q1

REPORT INFORMATION
  Report Type: 
  Country: None (occurrence: None)
  Receive Date: 20080111
  Receipt Date: 20080108
  Transmission Date: 20080703
  Serious: Yes (Hospitalization)
  Sender: FDA-Public Use
  Company Number: PHHY2008JP00518

PATIENT
  Age: 52 Year
  Sex: Female

DRUGS (2)
  1. NEORAL [Suspect]
     Indication: PSORIASIS
     Dosage: 150 MG/DAY
     Route: 048
  2. NEORAL [Suspect]
     Dosage: 125 MG/DAY
     Route: 048

REACTIONS (3)
  - CATARACT [None]
  - EYE DISORDER [None]
  - SURGERY [None]
